FAERS Safety Report 6644823-7 (Version None)
Quarter: 2010Q1

REPORT INFORMATION
  Report Type: 
  Country: None (occurrence: None)
  Receive Date: 20100322
  Receipt Date: 20100312
  Transmission Date: 20100710
  Serious: Yes (Other)
  Sender: FDA-Public Use
  Company Number: GXKR2010IL03017

PATIENT
  Age: 40 Year
  Sex: Male

DRUGS (2)
  1. RIBAVIRIN (NGX) [Suspect]
     Indication: HEPATITIS C
     Route: 065
  2. PEG-INTRON [Suspect]
     Indication: HEPATITIS C
     Route: 065

REACTIONS (6)
  - ACANTHOSIS [None]
  - ONYCHOLYSIS [None]
  - PARAKERATOSIS [None]
  - PSORIASIS [None]
  - RASH PAPULAR [None]
  - RASH PAPULOSQUAMOUS [None]
